FAERS Safety Report 15767464 (Version 1)
Quarter: 2018Q4

REPORT INFORMATION
  Report Type: Spontaneous
  Country: US (occurrence: US)
  Receive Date: 20181227
  Receipt Date: 20181227
  Transmission Date: 20190205
  Serious: Yes (Hospitalization)
  Sender: FDA-Public Use
  Company Number: US-TEVA-2018-US-991310

PATIENT
  Age: 22 Year
  Sex: Female

DRUGS (8)
  1. PROGESTERONE. [Suspect]
     Active Substance: PROGESTERONE
     Dosage: FOURTH DOSE IN OIL (DOSED EVERY 30 MINUTES)
     Route: 030
  2. VALACICLOVIR [Concomitant]
     Active Substance: VALACYCLOVIR HYDROCHLORIDE
     Indication: HERPES SIMPLEX
     Route: 065
  3. LEVOTHYROXINE SODIUM. [Concomitant]
     Active Substance: LEVOTHYROXINE SODIUM
     Indication: BLOOD THYROID STIMULATING HORMONE INCREASED
     Route: 065
  4. LEUPROLIDE ACETATE. [Concomitant]
     Active Substance: LEUPROLIDE ACETATE
     Indication: AUTOIMMUNE DERMATITIS
     Route: 065
  5. CONJUGATED EQUINE ESTROGENS [Suspect]
     Active Substance: ESTROGENS, CONJUGATED
     Indication: AUTOIMMUNE DERMATITIS
     Dosage: ADD-BACK THERAPY FOR VASOMOTOR SYMPTOMS
     Route: 065
  6. ETHINYLESTRADIOL/NORGESTIMATE [Suspect]
     Active Substance: ETHINYL ESTRADIOL\NORGESTIMATE
     Indication: AUTOIMMUNE DERMATITIS
     Dosage: 0.25 MG NORGESTIMATE AND 35 MICROGRAMS ETHINYL ESTRADIOL
     Route: 048
  7. AZATHIOPRINE. [Suspect]
     Active Substance: AZATHIOPRINE
     Indication: AUTOIMMUNE DERMATITIS
     Route: 065
  8. ESTRADIOL. [Concomitant]
     Active Substance: ESTRADIOL
     Indication: AUTOIMMUNE DERMATITIS
     Dosage: LATER CONTINUED AS ORAL FORMULATION
     Route: 062

REACTIONS (9)
  - Osteopenia [Unknown]
  - Skin reaction [Unknown]
  - Vomiting [Unknown]
  - Condition aggravated [Unknown]
  - Abdominal pain [Unknown]
  - Angiopathy [Recovering/Resolving]
  - Autoimmune dermatitis [Recovered/Resolved]
  - Drug ineffective [Unknown]
  - Condition aggravated [Recovered/Resolved]
